FAERS Safety Report 22777108 (Version 6)
Quarter: 2025Q1

REPORT INFORMATION
  Report Type: Spontaneous
  Country: US (occurrence: US)
  Receive Date: 20230802
  Receipt Date: 20250227
  Transmission Date: 20250409
  Serious: Yes (Disabling)
  Sender: ACCORD
  Company Number: US-Accord-284338

PATIENT
  Age: 43 Year
  Sex: Female

DRUGS (5)
  1. CARBOPLATIN [Suspect]
     Active Substance: CARBOPLATIN
     Indication: Breast cancer
     Dosage: NUMBER OF CYCLES: 5 CYCLES
     Dates: start: 20191115, end: 20200313
  2. DOCETAXEL [Suspect]
     Active Substance: DOCETAXEL
     Indication: Breast cancer
     Dosage: NUMBER OF CYCLES: 5 CYCLES
     Dates: start: 20191115, end: 20200313
  3. HERCEPTIN [Suspect]
     Active Substance: TRASTUZUMAB
     Indication: Breast cancer
     Dosage: NUMBER OF CYCLES: 6 CYCLES
     Dates: start: 20191115, end: 20200313
  4. PERJETA [Suspect]
     Active Substance: PERTUZUMAB
     Indication: Breast cancer
     Dates: start: 20191115, end: 20200313
  5. ADO-TRASTUZUMAB EMTANSINE [Suspect]
     Active Substance: ADO-TRASTUZUMAB EMTANSINE
     Indication: Breast cancer

REACTIONS (3)
  - Dacryostenosis acquired [Not Recovered/Not Resolved]
  - Off label use [Unknown]
  - Lacrimation increased [Not Recovered/Not Resolved]

NARRATIVE: CASE EVENT DATE: 20191101
